FAERS Safety Report 4364560-1 (Version None)
Quarter: 2004Q2

REPORT INFORMATION
  Report Type: 
  Country: None (occurrence: None)
  Receive Date: 20040525
  Receipt Date: 20040514
  Transmission Date: 20050107
  Serious: Yes (Death, Hospitalization)
  Sender: FDA-Public Use
  Company Number: FR-MERCK-0405FRA00054

PATIENT
  Age: 80 Year
  Sex: Male

DRUGS (6)
  1. ACARBOSE [Concomitant]
     Indication: DIABETES MELLITUS
     Route: 048
  2. ACENOCOUMAROL [Suspect]
     Indication: ATRIAL FIBRILLATION
     Route: 048
     Dates: end: 20030319
  3. CAPTOPRIL [Concomitant]
     Indication: ESSENTIAL HYPERTENSION
     Route: 048
  4. DIGOXIN [Concomitant]
     Route: 048
  5. GLYBURIDE [Suspect]
     Indication: DIABETES MELLITUS
     Route: 048
  6. ZOCOR [Suspect]
     Indication: ATHEROSCLEROSIS
     Route: 048

REACTIONS (2)
  - CEREBRAL HAEMORRHAGE [None]
  - DRUG INTERACTION [None]
